FAERS Safety Report 13441685 (Version 1)
Quarter: 2017Q2

REPORT INFORMATION
  Report Type: Spontaneous
  Country: US (occurrence: US)
  Receive Date: 20170414
  Receipt Date: 20170414
  Transmission Date: 20170830
  Serious: Yes (Hospitalization)
  Sender: FDA-Public Use
  Company Number: US-JNJFOC-200210-1027

PATIENT
  Age: 36 Month
  Sex: Male
  Weight: 14.3 kg

DRUGS (1)
  1. TETRAHYDROZOLINE HYDROCHLORIDE. [Suspect]
     Active Substance: TETRAHYDROZOLINE HYDROCHLORIDE
     Indication: ACCIDENTAL EXPOSURE TO PRODUCT
     Dosage: DAILY DOSE TEXT: 30 ML ONCE
     Route: 048

REACTIONS (7)
  - Respiratory rate [Recovered/Resolved]
  - Urinary incontinence [Recovered/Resolved]
  - Lethargy [Recovered/Resolved]
  - Hypotonia [Recovered/Resolved]
  - Accidental exposure to product [Unknown]
  - Pulse abnormal [Recovered/Resolved]
  - Blood pressure abnormal [Recovered/Resolved]
